FAERS Safety Report 6654590-9 (Version None)
Quarter: 2010Q1

REPORT INFORMATION
  Report Type: 
  Country: None (occurrence: None)
  Receive Date: 20100326
  Receipt Date: 20100316
  Transmission Date: 20100710
  Serious: Yes (Other)
  Sender: FDA-Public Use
  Company Number: US-PFIZER INC-2010034556

PATIENT
  Sex: Female
  Weight: 95.2 kg

DRUGS (7)
  1. NEURONTIN [Suspect]
     Indication: PAIN IN EXTREMITY
     Dosage: 100 MG, 6X/DAY
     Dates: start: 20080801, end: 20081201
  2. LYRICA [Suspect]
     Indication: INTERVERTEBRAL DISC PROTRUSION
     Dosage: 100 MG, 3X/DAY
     Route: 048
     Dates: start: 20081201
  3. LYRICA [Suspect]
     Indication: PAIN IN EXTREMITY
     Dosage: 100 MG, ONE IN MORNING, ONE IN AFTERNOON, TWO AT NIGHT
  4. TOPAMAX [Suspect]
     Indication: NEURALGIA
     Dosage: UNK
     Dates: start: 20091001
  5. METFORMIN [Concomitant]
     Indication: TYPE 2 DIABETES MELLITUS
     Dosage: 850 MG, 3X/DAY
  6. CYMBALTA [Concomitant]
     Indication: DEPRESSION
     Dosage: UNK
  7. SERTRALINE [Concomitant]
     Indication: DEPRESSION
     Dosage: UNK

REACTIONS (10)
  - BLADDER REPAIR [None]
  - BLOOD CHOLESTEROL INCREASED [None]
  - DRUG INEFFECTIVE [None]
  - INSOMNIA [None]
  - INTERVERTEBRAL DISC PROTRUSION [None]
  - NEURALGIA [None]
  - PAIN [None]
  - PERIPHERAL COLDNESS [None]
  - RENAL IMPAIRMENT [None]
  - WEIGHT INCREASED [None]
